FAERS Safety Report 10068045 (Version 1)
Quarter: 2014Q2

REPORT INFORMATION
  Report Type: Report from Study
  Country: US (occurrence: US)
  Receive Date: 20140409
  Receipt Date: 20140409
  Transmission Date: 20141212
  Serious: Yes (Hospitalization)
  Sender: FDA-Public Use
  Company Number: US-JNJFOC-20140402665

PATIENT
  Sex: Female
  Weight: 50.35 kg

DRUGS (4)
  1. REMICADE [Suspect]
     Indication: CROHN^S DISEASE
     Route: 042
  2. REMICADE [Suspect]
     Indication: CROHN^S DISEASE
     Route: 042
     Dates: start: 201305
  3. 6 MP [Concomitant]
     Indication: CROHN^S DISEASE
     Route: 065
  4. NEXIUM [Concomitant]
     Indication: GASTROOESOPHAGEAL REFLUX DISEASE
     Route: 048
     Dates: start: 1995

REACTIONS (4)
  - Intestinal obstruction [Recovered/Resolved]
  - Gastrointestinal disorder [Recovered/Resolved]
  - Intestinal ulcer [Recovered/Resolved]
  - Influenza [Not Recovered/Not Resolved]
